FAERS Safety Report 7514771-9 (Version None)
Quarter: 2011Q2

REPORT INFORMATION
  Report Type: 
  Country: None (occurrence: None)
  Receive Date: 20110526
  Receipt Date: 20110526
  Transmission Date: 20111010
  Serious: Yes (Other)
  Sender: FDA-Public Use
  Company Number: None

PATIENT
  Sex: Female

DRUGS (1)
  1. TEMODAR [Suspect]
     Indication: OLIGODENDROGLIOMA
     Dosage: 400MG QD PO X5 DAYS WILL RETRY ON 5-25TH OR 26TH
     Route: 048
     Dates: start: 20110301

REACTIONS (3)
  - HEADACHE [None]
  - RASH [None]
  - PLATELET COUNT DECREASED [None]
